FAERS Safety Report 20490583 (Version 2)
Quarter: 2022Q1

REPORT INFORMATION
  Report Type: Spontaneous
  Country: BY (occurrence: BY)
  Receive Date: 20220218
  Receipt Date: 20220310
  Transmission Date: 20220423
  Serious: No
  Sender: FDA-Public Use
  Company Number: BY-SA-SAC20220210000198

PATIENT
  Age: 32 Year
  Sex: Female

DRUGS (23)
  1. ENOXAPARIN SODIUM [Suspect]
     Active Substance: ENOXAPARIN SODIUM
     Indication: COVID-19 treatment
     Dosage: UNK,
     Dates: start: 202105
  2. FOLIC ACID [Suspect]
     Active Substance: FOLIC ACID
     Indication: Prophylaxis
     Dosage: 400 UG, QD, UNTIL THE 12TH WEEK
     Dates: start: 2021
  3. POTASSIUM IODIDE [Suspect]
     Active Substance: POTASSIUM IODIDE
     Indication: Prophylaxis
     Dosage: 200 MG, QD, THROUGHOUT THE PREGNANCY
     Dates: start: 2021
  4. CALCIUM [Suspect]
     Active Substance: CALCIUM
     Indication: Prophylaxis
     Dosage: 1 DF, QD
     Dates: start: 2021
  5. ASPIRIN [Suspect]
     Active Substance: ASPIRIN
     Indication: Prophylaxis
     Dosage: UNK
     Dates: start: 2021
  6. MAGNESIUM HYDROXIDE [Suspect]
     Active Substance: MAGNESIUM HYDROXIDE
     Indication: Prophylaxis
     Dosage: 75 MG, QD, UP TO THE 36TH WEEK
     Route: 048
     Dates: start: 2021
  7. PYRIDOXINE HYDROCHLORIDE [Suspect]
     Active Substance: PYRIDOXINE HYDROCHLORIDE
     Indication: Prophylaxis
     Dosage: 500 MG, BID IN COURSES OF 2 WEEKS
     Dates: start: 2021
  8. PENTOXIFYLLINE [Suspect]
     Active Substance: PENTOXIFYLLINE
     Indication: Prophylaxis
     Dosage: 10 MG, TID
     Dates: start: 2021
  9. SPIRAMYCIN [Suspect]
     Active Substance: SPIRAMYCIN
     Indication: Bronchitis
     Dosage: 1500000 IU, TID
     Dates: start: 202105
  10. ACETAMINOPHEN [Suspect]
     Active Substance: ACETAMINOPHEN
     Indication: Suspected COVID-19
     Dosage: UNK
     Dates: start: 202105
  11. MEROPENEM [Suspect]
     Active Substance: MEROPENEM
     Indication: COVID-19 treatment
     Dosage: UNK
     Dates: start: 202105
  12. AZITHROMYCIN [Suspect]
     Active Substance: AZITHROMYCIN
     Indication: COVID-19 treatment
     Dosage: UNK
     Dates: start: 202105
  13. CEFTRIAXONE [Suspect]
     Active Substance: CEFTRIAXONE
     Indication: COVID-19 treatment
     Dosage: UNK
     Dates: start: 202105
  14. VITAMIN D NOS [Suspect]
     Active Substance: VITAMIN D NOS
     Indication: Prophylaxis
     Dosage: 1 DF, QD
     Dates: start: 2021
  15. MAGNESIUM [Suspect]
     Active Substance: MAGNESIUM
     Indication: Prophylaxis
     Dosage: UNK
     Dates: start: 2021
  16. CHAMOMILE [Suspect]
     Active Substance: CHAMOMILE
     Indication: Respiratory tract infection viral
     Dosage: INFUSION
     Dates: start: 202105
  17. SODIUM CHLORIDE [Suspect]
     Active Substance: SODIUM CHLORIDE
     Indication: Bronchitis
     Dosage: UNK (INHALATION)
     Dates: start: 202105
  18. VITAMINS NOS [Suspect]
     Active Substance: VITAMINS
     Indication: Suspected COVID-19
     Dosage: UNK
     Dates: start: 202105
  19. OXYGEN [Suspect]
     Active Substance: OXYGEN
     Indication: Pneumonia viral
     Dosage: UNK
     Dates: start: 202105
  20. OXYGEN [Suspect]
     Active Substance: OXYGEN
     Indication: Pneumonia bacterial
  21. OXYGEN [Suspect]
     Active Substance: OXYGEN
     Indication: Respiratory failure
  22. PROTEASE [Suspect]
     Active Substance: PROTEASE
     Indication: COVID-19 treatment
     Dosage: UNK
     Dates: start: 202105
  23. ALBUMIN HUMAN [Suspect]
     Active Substance: ALBUMIN HUMAN
     Indication: COVID-19 treatment
     Dosage: UNK
     Dates: start: 202105

REACTIONS (2)
  - Exposure during pregnancy [Unknown]
  - Off label use [Unknown]
